FAERS Safety Report 7513162-4 (Version None)
Quarter: 2011Q2

REPORT INFORMATION
  Report Type: 
  Country: None (occurrence: None)
  Receive Date: 20110531
  Receipt Date: 20110525
  Transmission Date: 20111010
  Serious: Yes (Hospitalization)
  Sender: FDA-Public Use
  Company Number: US-MERCK-0905USA02015

PATIENT
  Age: 60 Year
  Sex: Female
  Weight: 73 kg

DRUGS (9)
  1. BONIVA [Suspect]
     Indication: OSTEOPOROSIS PROPHYLAXIS
     Route: 065
     Dates: start: 20060901, end: 20090501
  2. OS-CAL [Concomitant]
     Route: 065
  3. SYNTHROID [Concomitant]
     Indication: THYROID HORMONE REPLACEMENT THERAPY
     Route: 065
  4. PREMARIN [Concomitant]
     Indication: HORMONE REPLACEMENT THERAPY
     Route: 065
     Dates: start: 19800101
  5. ZYRTEC [Concomitant]
     Route: 065
  6. FOSAMAX [Suspect]
     Route: 048
     Dates: start: 20030101, end: 20060101
  7. FOSAMAX [Suspect]
     Indication: OSTEOPENIA
     Route: 048
     Dates: start: 20030201, end: 20060101
  8. FOSAMAX [Suspect]
     Route: 048
     Dates: start: 20030101, end: 20060101
  9. FOSAMAX [Suspect]
     Indication: OSTEOPOROSIS
     Route: 048
     Dates: start: 20030201, end: 20060101

REACTIONS (10)
  - TOOTH FRACTURE [None]
  - INTERVERTEBRAL DISC PROTRUSION [None]
  - FALL [None]
  - ARTHRALGIA [None]
  - LUMBAR SPINAL STENOSIS [None]
  - TENOSYNOVITIS STENOSANS [None]
  - OSTEOARTHRITIS [None]
  - FEMUR FRACTURE [None]
  - BACK PAIN [None]
  - LOW TURNOVER OSTEOPATHY [None]
